FAERS Safety Report 6417687-4 (Version None)
Quarter: 2009Q4

REPORT INFORMATION
  Report Type: 
  Country: None (occurrence: None)
  Receive Date: 20091026
  Receipt Date: 20091013
  Transmission Date: 20100525
  Serious: Yes (Disabling)
  Sender: FDA-Public Use
  Company Number: ADR40112009

PATIENT
  Age: 55 Year
  Sex: Male

DRUGS (2)
  1. SIMVASTATIN [Suspect]
     Indication: BLOOD TRIGLYCERIDES INCREASED
     Dosage: 40 MG
     Route: 048
     Dates: start: 20081201, end: 20081230
  2. ATORVASTATIN [Concomitant]
     Dosage: 20MG

REACTIONS (5)
  - ABNORMAL DREAMS [None]
  - HYPERSOMNIA [None]
  - LISTLESS [None]
  - PRURITUS [None]
  - SKIN EXFOLIATION [None]
